FAERS Safety Report 14743006 (Version 2)
Quarter: 2019Q2

REPORT INFORMATION
  Report Type: Spontaneous
  Country: US (occurrence: US)
  Receive Date: 20180410
  Receipt Date: 20190401
  Transmission Date: 20190711
  Serious: No
  Sender: FDA-Public Use
  Company Number: US-SEPTODONT-201704454

PATIENT

DRUGS (2)
  1. LIDOCAINE 100 - GRAHAM BENCO (EPINEPHRINE BITARTRATE\LIDOCAINE HYDROCHLORIDE) [Suspect]
     Active Substance: EPINEPHRINE BITARTRATE\LIDOCAINE HYDROCHLORIDE
     Indication: LOCAL ANAESTHESIA
  2. LIDOCAINE 100 - GRAHAM BENCO (EPINEPHRINE BITARTRATE\LIDOCAINE HYDROCHLORIDE) [Suspect]
     Active Substance: EPINEPHRINE BITARTRATE\LIDOCAINE HYDROCHLORIDE
     Indication: LOCAL ANAESTHESIA

REACTIONS (1)
  - Drug ineffective [Recovered/Resolved]
